FAERS Safety Report 9907859 (Version 1)
Quarter: 2014Q1

REPORT INFORMATION
  Report Type: Spontaneous
  Country: US (occurrence: US)
  Receive Date: 20140219
  Receipt Date: 20140219
  Transmission Date: 20141002
  Serious: No
  Sender: FDA-Public Use
  Company Number: US-BIOGENIDEC-2014BI014242

PATIENT
  Age: 66 Year
  Sex: Female

DRUGS (8)
  1. TECFIDERA [Suspect]
     Indication: MULTIPLE SCLEROSIS
     Route: 048
  2. BUDEPRION SR [Concomitant]
  3. CYANOCOBALAMIN [Concomitant]
  4. CYCLOBENZAPRINE HCI [Concomitant]
  5. GABAPENTIN [Concomitant]
  6. SERTRALINE HCI [Concomitant]
  7. TRAZODONE HCI [Concomitant]
  8. WELLBUTRIN [Concomitant]

REACTIONS (1)
  - Eye pain [Unknown]
